FAERS Safety Report 15509040 (Version 1)
Quarter: 2018Q4

REPORT INFORMATION
  Report Type: Spontaneous
  Country: US (occurrence: US)
  Receive Date: 20181016
  Receipt Date: 20181016
  Transmission Date: 20190205
  Serious: Yes (Hospitalization)
  Sender: FDA-Public Use
  Company Number: None

PATIENT
  Age: 52 Year
  Sex: Male
  Weight: 120.15 kg

DRUGS (2)
  1. RILUZOLE. [Concomitant]
     Active Substance: RILUZOLE
     Dates: start: 20180201
  2. EDARAVONE [Suspect]
     Active Substance: EDARAVONE
     Indication: AMYOTROPHIC LATERAL SCLEROSIS
     Dosage: ?          OTHER FREQUENCY:DAILY 10DAYS/MONTH;?
     Route: 041
     Dates: start: 20180508, end: 20180907

REACTIONS (2)
  - Sepsis [None]
  - Device related infection [None]

NARRATIVE: CASE EVENT DATE: 20180912
